FAERS Safety Report 8718476 (Version 2)
Quarter: 2012Q4

REPORT INFORMATION
  Report Type: 
  Country: JP (occurrence: JP)
  Receive Date: 20120810
  Receipt Date: 20121023
  Transmission Date: 20130627
  Serious: Yes (Life-Threatening, Hospitalization)
  Sender: FDA-Public Use
  Company Number: JP-B.I. PHARMACEUTICALS,INC./RIDGEFIELD-2012-BP-16530NB

PATIENT
  Age: 82 Year
  Sex: Female
  Weight: 45.5 kg

DRUGS (2)
  1. PRAZAXA [Suspect]
     Indication: ATRIAL FIBRILLATION
     Dosage: 220 mg
     Route: 048
     Dates: start: 201105, end: 20120720
  2. RHEUMATREX [Suspect]
     Indication: MUSCULOSKELETAL PAIN
     Route: 048
     Dates: start: 201103

REACTIONS (8)
  - Renal impairment [Recovered/Resolved]
  - Full blood count decreased [Recovered/Resolved]
  - Rash [Recovered/Resolved]
  - Haemorrhage subcutaneous [Recovered/Resolved]
  - Mouth haemorrhage [Recovered/Resolved]
  - Activated partial thromboplastin time prolonged [Recovered/Resolved]
  - Blood pressure decreased [Unknown]
  - Overdose [Unknown]
